FAERS Safety Report 19958177 (Version 2)
Quarter: 2021Q4

REPORT INFORMATION
  Report Type: Spontaneous
  Country: SE (occurrence: SE)
  Receive Date: 20211015
  Receipt Date: 20211025
  Transmission Date: 20220303
  Serious: Yes (Other)
  Sender: FDA-Public Use
  Company Number: SE-BAYER-2021-147042

PATIENT
  Age: 18 Year

DRUGS (4)
  1. MONTELUKAST [Suspect]
     Active Substance: MONTELUKAST SODIUM
     Indication: Product used for unknown indication
     Dosage: UNK
     Dates: start: 202104, end: 202105
  2. LAROTRECTINIB [Suspect]
     Active Substance: LAROTRECTINIB
     Indication: Sarcoma
     Dosage: UNK
     Dates: end: 202001
  3. LAROTRECTINIB [Suspect]
     Active Substance: LAROTRECTINIB
     Indication: Sarcoma
     Dosage: 100 MILLIGRAM, QD
     Route: 048
     Dates: start: 20210218
  4. LAROTRECTINIB [Suspect]
     Active Substance: LAROTRECTINIB
     Dosage: 75 MILLIGRAM
     Route: 048
     Dates: start: 20210527

REACTIONS (3)
  - Mental disorder [Recovered/Resolved]
  - Asthma [Recovered/Resolved]
  - Multiple allergies [Recovered/Resolved]

NARRATIVE: CASE EVENT DATE: 20210401
